FAERS Safety Report 6839036-X (Version None)
Quarter: 2010Q3

REPORT INFORMATION
  Report Type: 
  Country: None (occurrence: None)
  Receive Date: 20100714
  Receipt Date: 20100311
  Transmission Date: 20110219
  Serious: Yes (Hospitalization, Other)
  Sender: FDA-Public Use
  Company Number: US-ASTRAZENECA-2010SE32164

PATIENT
  Age: 44 Year
  Sex: Female

DRUGS (15)
  1. SEROQUEL [Suspect]
     Indication: NIGHTMARE
     Dosage: 25 TO 900 MG
     Route: 048
     Dates: start: 20011120
  2. SEROQUEL [Suspect]
     Indication: SLEEP DISORDER
     Dosage: 25 TO 900 MG
     Route: 048
     Dates: start: 20011120
  3. SEROQUEL [Suspect]
     Indication: POST-TRAUMATIC STRESS DISORDER
     Dosage: 25 TO 900 MG
     Route: 048
     Dates: start: 20011120
  4. ATARAX [Concomitant]
     Indication: PANIC DISORDER
     Dates: start: 20031204
  5. CELEXA [Concomitant]
     Indication: DEPRESSION
     Dates: start: 20031204
  6. PROZAC [Concomitant]
     Indication: SLEEP TERROR
     Dates: start: 20031204
  7. BUSPAR [Concomitant]
     Indication: ANXIETY
     Dates: start: 20031204
  8. LITHIUM [Concomitant]
     Dates: start: 20010101
  9. TRAZODONE HYDROCHLORIDE [Concomitant]
     Dates: start: 20010101
  10. EFFEXOR [Concomitant]
     Dates: start: 20011120
  11. HYDROCODONE BITARTRATE [Concomitant]
     Dates: start: 20011120
  12. LORAZEPAM [Concomitant]
     Dosage: AT BEDTIME
     Dates: start: 20011120
  13. AMBIEN [Concomitant]
     Dates: start: 20011120
  14. LIPITOR [Concomitant]
     Dates: start: 20040308
  15. LOPID [Concomitant]
     Dates: start: 20040308

REACTIONS (5)
  - OVERDOSE [None]
  - PANCREATITIS [None]
  - SUICIDAL IDEATION [None]
  - SUICIDE ATTEMPT [None]
  - TYPE 2 DIABETES MELLITUS [None]
